FAERS Safety Report 18793050 (Version 2)
Quarter: 2021Q1

REPORT INFORMATION
  Report Type: Spontaneous
  Country: US (occurrence: US)
  Receive Date: 20210127
  Receipt Date: 20210201
  Transmission Date: 20210419
  Serious: Yes (Death, Life-Threatening, Hospitalization, Other)
  Sender: FDA-Public Use
  Company Number: US-PFIZER INC-2021057511

PATIENT
  Age: 70 Year
  Sex: Female

DRUGS (2)
  1. CHLORPROPAMIDE. [Suspect]
     Active Substance: CHLORPROPAMIDE
     Indication: DIABETES MELLITUS
     Dosage: 100 MG, DAILY
     Dates: start: 1962, end: 196301
  2. HEMATINIC [ASCORBIC ACID;COPPER GLUCONATE;CYANOCOBALAMIN;FERROUS GLUCO [Concomitant]
     Dosage: UNK
     Dates: start: 1962

REACTIONS (1)
  - Agranulocytosis [Fatal]

NARRATIVE: CASE EVENT DATE: 1963
